FAERS Safety Report 6802675-6 (Version None)
Quarter: 2010Q2

REPORT INFORMATION
  Report Type: 
  Country: None (occurrence: None)
  Receive Date: 20100628
  Receipt Date: 20100617
  Transmission Date: 20101027
  Serious: Yes (Other)
  Sender: FDA-Public Use
  Company Number: FR-ASTRAZENECA-2010SE28991

PATIENT
  Age: 60 Year
  Sex: Male

DRUGS (2)
  1. ZESTORETIC [Suspect]
     Indication: HYPERTENSION
     Route: 048
     Dates: end: 20100617
  2. AMLOR [Suspect]
     Indication: HYPERTENSION
     Route: 048
     Dates: end: 20100617

REACTIONS (5)
  - ANGIOEDEMA [None]
  - ANTINUCLEAR ANTIBODY POSITIVE [None]
  - ARTHRALGIA [None]
  - PHOTOSENSITIVITY REACTION [None]
  - PYREXIA [None]
